FAERS Safety Report 10693039 (Version 1)
Quarter: 2014Q4

REPORT INFORMATION
  Report Type: Spontaneous
  Country: US (occurrence: None)
  Receive Date: 20141223
  Receipt Date: 20141223
  Transmission Date: 20150529
  Serious: No
  Sender: FDA-Public Use
  Company Number: 1000070741

PATIENT
  Age: 70 Year
  Sex: Male

DRUGS (1)
  1. LINZESS [Suspect]
     Active Substance: LINACLOTIDE
     Indication: CONSTIPATION
     Dosage: 1 IN 2 D,
     Route: 048
     Dates: start: 201407, end: 20140805

REACTIONS (5)
  - Liver function test abnormal [None]
  - Diarrhoea [None]
  - Blood cholesterol increased [None]
  - Blood sodium increased [None]
  - Abdominal pain [None]

NARRATIVE: CASE EVENT DATE: 201407
